FAERS Safety Report 7965635-8 (Version None)
Quarter: 2011Q4

REPORT INFORMATION
  Report Type: 
  Country: None (occurrence: None)
  Receive Date: 20111208
  Receipt Date: 20111206
  Transmission Date: 20120403
  Serious: Yes (Death)
  Sender: FDA-Public Use
  Company Number: PHHY2011IT106392

PATIENT
  Sex: Female

DRUGS (1)
  1. VENLAFAXINE [Suspect]

REACTIONS (3)
  - PANCYTOPENIA [None]
  - THROMBOCYTOPENIA [None]
  - AGRANULOCYTOSIS [None]
